FAERS Safety Report 14096545 (Version 1)
Quarter: 2017Q4

REPORT INFORMATION
  Report Type: Spontaneous
  Country: US (occurrence: US)
  Receive Date: 20171017
  Receipt Date: 20171017
  Transmission Date: 20180321
  Serious: No
  Sender: FDA-Public Use
  Company Number: US-BIOGEN-2017BI00471617

PATIENT
  Sex: Female

DRUGS (1)
  1. TYSABRI [Suspect]
     Active Substance: NATALIZUMAB
     Indication: MULTIPLE SCLEROSIS
     Route: 065
     Dates: start: 20171004

REACTIONS (7)
  - Nausea [Unknown]
  - Nervousness [Recovered/Resolved]
  - Chest pain [Recovered/Resolved]
  - Psychomotor hyperactivity [Unknown]
  - Insomnia [Unknown]
  - Fatigue [Unknown]
  - Dizziness [Recovered/Resolved]
